FAERS Safety Report 7404840-6 (Version None)
Quarter: 2011Q1

REPORT INFORMATION
  Report Type: 
  Country: None (occurrence: None)
  Receive Date: 20110301
  Receipt Date: 20101206
  Transmission Date: 20110831
  Serious: Yes (Disabling, Other)
  Sender: FDA-Public Use
  Company Number: ALA_01457_2011

PATIENT
  Sex: Female
  Weight: 129.2752 kg

DRUGS (4)
  1. PHENERGAN /00404701/ [Concomitant]
  2. INSULIN [Concomitant]
  3. AMBIEN [Concomitant]
  4. REGLAN [Suspect]
     Indication: DIABETIC GASTROPARESIS
     Dosage: (DF ORAL)
     Route: 048
     Dates: start: 19940401, end: 20090614

REACTIONS (1)
  - TARDIVE DYSKINESIA [None]
